FAERS Safety Report 6584251-6 (Version None)
Quarter: 2010Q1

REPORT INFORMATION
  Report Type: 
  Country: None (occurrence: None)
  Receive Date: 20100213
  Receipt Date: 20100213
  Transmission Date: 20100710
  Serious: Yes (Other)
  Sender: FDA-Public Use
  Company Number: None

PATIENT
  Age: 41 Year
  Sex: Female
  Weight: 65.318 kg

DRUGS (1)
  1. ISOVUE-300 [Suspect]
     Indication: UROGRAM
     Dosage: 100 CC LESS THAN 10 SECS IV
     Route: 042
     Dates: start: 20100115, end: 20100115

REACTIONS (22)
  - ABDOMINAL DISTENSION [None]
  - BACK PAIN [None]
  - BLOOD BLISTER [None]
  - BURNING SENSATION [None]
  - CHEST PAIN [None]
  - DEHYDRATION [None]
  - DIZZINESS [None]
  - DRY SKIN [None]
  - DYSGEUSIA [None]
  - ERYTHEMA [None]
  - EYE PAIN [None]
  - GROIN PAIN [None]
  - HEADACHE [None]
  - HYPOAESTHESIA [None]
  - LACRIMATION INCREASED [None]
  - MADAROSIS [None]
  - PARAESTHESIA [None]
  - RASH [None]
  - RENAL PAIN [None]
  - SWELLING FACE [None]
  - THROAT IRRITATION [None]
  - TINNITUS [None]
